FAERS Safety Report 5761638-2 (Version None)
Quarter: 2008Q2

REPORT INFORMATION
  Report Type: 
  Country: None (occurrence: None)
  Receive Date: 20080606
  Receipt Date: 20080530
  Transmission Date: 20081010
  Serious: Yes (Other)
  Sender: FDA-Public Use
  Company Number: JP-PFIZER INC-2008036034

PATIENT
  Age: 71 Year
  Sex: Female

DRUGS (5)
  1. LIPITOR [Suspect]
     Indication: HYPERCHOLESTEROLAEMIA
     Dosage: DAILY DOSE:5MG
     Route: 048
  2. NORVASC [Suspect]
     Indication: HYPERTENSION
     Dosage: DAILY DOSE:5MG
     Route: 048
  3. LONGES [Suspect]
     Indication: HYPERTENSION
     Dosage: DAILY DOSE:10MG
     Route: 048
  4. HIBON [Concomitant]
     Route: 048
  5. PYDOXAL [Concomitant]

REACTIONS (2)
  - HAEMATURIA [None]
  - PHOTOSENSITIVITY REACTION [None]
